FAERS Safety Report 17669504 (Version 3)
Quarter: 2020Q2

REPORT INFORMATION
  Report Type: Spontaneous
  Country: GR (occurrence: GR)
  Receive Date: 20200415
  Receipt Date: 20200508
  Transmission Date: 20200713
  Serious: Yes (Other)
  Sender: FDA-Public Use
  Company Number: GR-ELI_LILLY_AND_COMPANY-GR202004003919

PATIENT
  Age: 71 Year
  Sex: Female

DRUGS (2)
  1. FORSTEO 250UG/ML [Suspect]
     Active Substance: TERIPARATIDE
     Indication: OSTEOPOROSIS
     Dosage: 20 UG, DAILY
     Route: 058
     Dates: start: 202001, end: 20200408
  2. FORSTEO 250UG/ML [Suspect]
     Active Substance: TERIPARATIDE
     Dosage: 20 UG, DAILY
     Route: 058
     Dates: start: 20200413

REACTIONS (2)
  - Tachycardia [Not Recovered/Not Resolved]
  - Malignant melanoma [Unknown]

NARRATIVE: CASE EVENT DATE: 20200329
